FAERS Safety Report 13505088 (Version 1)
Quarter: 2017Q2

REPORT INFORMATION
  Report Type: Spontaneous
  Country: US (occurrence: US)
  Receive Date: 20170502
  Receipt Date: 20170502
  Transmission Date: 20170830
  Serious: No
  Sender: FDA-Public Use
  Company Number: US-TARO-2017TAR00036

PATIENT
  Sex: Male

DRUGS (1)
  1. AMIODARONE HCL TABLET 100 MG [Suspect]
     Active Substance: AMIODARONE HYDROCHLORIDE
     Indication: ATRIAL FIBRILLATION
     Dosage: UNK
     Dates: end: 201611

REACTIONS (3)
  - Off label use [Recovered/Resolved]
  - Tachycardia [Unknown]
  - Dyspnoea [Unknown]
